FAERS Safety Report 7862075-7 (Version None)
Quarter: 2011Q4

REPORT INFORMATION
  Report Type: 
  Country: None (occurrence: None)
  Receive Date: 20111027
  Receipt Date: 20101108
  Transmission Date: 20120403
  Serious: No
  Sender: FDA-Public Use
  Company Number: US-AMGEN-USASP2010003908

PATIENT
  Age: 56 Year
  Sex: Female

DRUGS (1)
  1. ENBREL [Suspect]
     Indication: RHEUMATOID ARTHRITIS
     Dates: start: 20030101, end: 20101018

REACTIONS (5)
  - ARTHRALGIA [None]
  - JOINT SWELLING [None]
  - SINUSITIS [None]
  - INJECTION SITE PAIN [None]
  - MILK ALLERGY [None]
